FAERS Safety Report 4989806-8 (Version None)
Quarter: 2006Q2

REPORT INFORMATION
  Report Type: 
  Country: None (occurrence: None)
  Receive Date: 20060503
  Receipt Date: 20060322
  Transmission Date: 20061013
  Serious: Yes (Hospitalization)
  Sender: FDA-Public Use
  Company Number: GR-ABBOTT-06P-066-0328939-00

PATIENT
  Age: 16 Year
  Sex: Male

DRUGS (1)
  1. KLARICID TABLETS [Suspect]
     Indication: UPPER RESPIRATORY TRACT INFECTION
     Route: 048

REACTIONS (1)
  - LOSS OF CONSCIOUSNESS [None]
